FAERS Safety Report 16235387 (Version 2)
Quarter: 2019Q2

REPORT INFORMATION
  Report Type: Spontaneous
  Country: DE (occurrence: DE)
  Receive Date: 20190424
  Receipt Date: 20190426
  Transmission Date: 20190711
  Serious: Yes (Hospitalization)
  Sender: FDA-Public Use
  Company Number: DE-ANIPHARMA-2019-DE-000050

PATIENT
  Sex: Female

DRUGS (14)
  1. IMODIUM [Suspect]
     Active Substance: LOPERAMIDE HYDROCHLORIDE
     Dosage: UNK UNK, PRN
     Route: 065
  2. ATORVASTATIN [Suspect]
     Active Substance: ATORVASTATIN
     Dosage: 40 MG DAILY
     Route: 065
  3. TOREM [Suspect]
     Active Substance: TORSEMIDE
     Dosage: 200 MG DAILY
     Route: 065
  4. PANTOPRAZOL [Suspect]
     Active Substance: PANTOPRAZOLE SODIUM
     Dosage: 40 MG, QD
     Route: 065
  5. HYDROCHLOROTHIAZIDE. [Suspect]
     Active Substance: HYDROCHLOROTHIAZIDE
     Dosage: 12.5 MG, QD, NON-AZ
     Route: 065
  6. DICLO [Suspect]
     Active Substance: DICLOFENAC SODIUM
     Dosage: UNK UNK, PRN
     Route: 065
  7. LAMOTRIGINE. [Suspect]
     Active Substance: LAMOTRIGINE
     Dosage: 100 MG BID
     Route: 065
  8. REVITEN [Suspect]
     Active Substance: TRIAMTERENE
     Dosage: UNK UNK, QD
     Route: 065
  9. PREDNISOLONE. [Suspect]
     Active Substance: PREDNISOLONE
     Dosage: DOSE TEXT: 3 DF, QD
     Route: 065
  10. ASPIRIN. [Suspect]
     Active Substance: ASPIRIN
     Dosage: 100 MG, DAILY, NON-
     Route: 065
  11. METOHEXAL [Suspect]
     Active Substance: METOPROLOL
     Dosage: 23.75 MG DAILY
     Route: 065
  12. CANDESARTAN CILEXETIL. [Suspect]
     Active Substance: CANDESARTAN CILEXETIL
     Indication: PRODUCT USED FOR UNKNOWN INDICATION
     Dosage: 4 MG DAILY
     Route: 048
  13. SPIRONOLACTONE. [Suspect]
     Active Substance: SPIRONOLACTONE
     Dosage: 50 MG DAILY
     Route: 065
  14. BONDIOL [Suspect]
     Active Substance: ALFACALCIDOL
     Dosage: .25 UG/INHAL DAILY
     Route: 065

REACTIONS (13)
  - Oedema peripheral [Recovering/Resolving]
  - End stage renal disease [Unknown]
  - Peripheral swelling [Recovering/Resolving]
  - Dyspnoea exertional [Recovering/Resolving]
  - Cardiac failure [Recovering/Resolving]
  - Pain in extremity [Recovering/Resolving]
  - Urinary tract infection [Unknown]
  - Waist circumference increased [Recovering/Resolving]
  - Hypotension [Unknown]
  - N-terminal prohormone brain natriuretic peptide increased [Unknown]
  - Soft tissue infection [Recovering/Resolving]
  - Leukocytosis [Unknown]
  - Hypokalaemia [Recovered/Resolved]

NARRATIVE: CASE EVENT DATE: 20181029
